FAERS Safety Report 18145162 (Version 3)
Quarter: 2021Q1

REPORT INFORMATION
  Report Type: Spontaneous
  Country: US (occurrence: US)
  Receive Date: 20200813
  Receipt Date: 20210205
  Transmission Date: 20210419
  Serious: No
  Sender: FDA-Public Use
  Company Number: US-PFIZER INC-2020306262

PATIENT
  Age: 65 Year
  Sex: Male

DRUGS (1)
  1. PHENYTOIN. [Suspect]
     Active Substance: PHENYTOIN
     Indication: SEIZURE
     Dosage: UNK

REACTIONS (1)
  - Drug ineffective [Unknown]
